FAERS Safety Report 17942903 (Version 4)
Quarter: 2020Q4

REPORT INFORMATION
  Report Type: Report from Study
  Country: None (occurrence: US)
  Receive Date: 20200624
  Receipt Date: 20201130
  Transmission Date: 20210113
  Serious: Yes (Hospitalization, Other)
  Sender: FDA-Public Use
  Company Number: US-ABBVIE-20K-163-3455684-00

PATIENT
  Age: 80 Year
  Sex: Female
  Weight: 79.45 kg

DRUGS (2)
  1. AMLODIPINE [Concomitant]
     Active Substance: AMLODIPINE BESYLATE
     Indication: BLOOD PRESSURE MEASUREMENT
  2. HUMIRA [Suspect]
     Active Substance: ADALIMUMAB
     Indication: CROHN^S DISEASE
     Dosage: CITRATE FREE
     Route: 058
     Dates: start: 2017

REACTIONS (3)
  - Fall [Recovered/Resolved]
  - Confusional state [Unknown]
  - Bile duct stone [Recovered/Resolved]

NARRATIVE: CASE EVENT DATE: 202005
